FAERS Safety Report 7755705-1 (Version None)
Quarter: 2011Q3

REPORT INFORMATION
  Report Type: 
  Country: None (occurrence: None)
  Receive Date: 20110916
  Receipt Date: 20110906
  Transmission Date: 20111222
  Serious: Yes (Hospitalization, Other)
  Sender: FDA-Public Use
  Company Number: PHHY2011US34797

PATIENT
  Sex: Female
  Weight: 69.388 kg

DRUGS (12)
  1. COLACE [Concomitant]
     Dosage: 100 MG, QD
     Route: 048
  2. INSULIN [Concomitant]
     Dosage: UNK UKN, UNK
     Route: 058
  3. GLEEVEC [Suspect]
     Dosage: 200 MG, UNK
     Route: 048
     Dates: start: 20100816
  4. COUMADIN [Concomitant]
     Dosage: 6 MG, QD
     Route: 048
  5. GLEEVEC [Suspect]
     Indication: CHRONIC MYELOID LEUKAEMIA
     Dosage: 400 MG, QD
     Route: 048
     Dates: start: 20091119, end: 20100601
  6. PROTONIX [Concomitant]
     Dosage: 40 MG, QD
     Route: 048
  7. LISINOPRIL [Concomitant]
     Dosage: 20 MG, QD
     Route: 048
  8. SYNTHROID [Concomitant]
     Dosage: 175 MG, QD
     Route: 048
  9. ALLOPURINOL [Concomitant]
     Dosage: 300 MG, QD
     Route: 048
  10. ASPIRIN [Concomitant]
  11. FERROUS SULFATE TAB [Concomitant]
     Dosage: 325 MG, QD
     Route: 048
  12. MULTI-VITAMINS [Concomitant]
     Dosage: 1 DF, QD
     Route: 048

REACTIONS (7)
  - DEPRESSION [None]
  - ANXIETY [None]
  - NAUSEA [None]
  - LEUKOPENIA [None]
  - MENTAL DISORDER [None]
  - PERIORBITAL OEDEMA [None]
  - BLOOD COUNT ABNORMAL [None]
